FAERS Safety Report 13966019 (Version 1)
Quarter: 2017Q3

REPORT INFORMATION
  Report Type: Spontaneous
  Country: US (occurrence: US)
  Receive Date: 20170913
  Receipt Date: 20170913
  Transmission Date: 20171128
  Serious: Yes (Other)
  Sender: FDA-Public Use
  Company Number: US-IMPAX LABORATORIES, INC-2017-IPXL-02390

PATIENT
  Sex: Male
  Weight: 86 kg

DRUGS (17)
  1. RYTARY [Suspect]
     Active Substance: CARBIDOPA\LEVODOPA
     Dosage: 61.25/245 MG, 1 DF, 3 /DAY
     Route: 048
     Dates: start: 2017
  2. CARDIZEM [Concomitant]
     Active Substance: DILTIAZEM HYDROCHLORIDE
     Indication: CARDIAC DISORDER
     Dosage: 120 MG, 1 /DAY, SINCE 2 YEARS
     Route: 065
     Dates: start: 2017
  3. LOPRESSOR [Concomitant]
     Active Substance: METOPROLOL TARTRATE
     Indication: HYPERTENSION
     Dosage: 50 MG, 1 /DAY, SINCE 10 YEARS
     Route: 065
  4. ALLOPURINOL. [Concomitant]
     Active Substance: ALLOPURINOL
     Indication: GOUT
     Dosage: 100 MG, 1 /DAY, SINCE 2 YEARS
     Route: 065
     Dates: start: 2015
  5. ATORVASTATIN [Concomitant]
     Active Substance: ATORVASTATIN
     Indication: BLOOD CHOLESTEROL
     Dosage: 20 MG, 1 /DAY
     Route: 065
     Dates: start: 201708
  6. RYTARY [Suspect]
     Active Substance: CARBIDOPA\LEVODOPA
     Dosage: 61.25/245 MG ONE CAPSULE THREE TIMES DAILY
     Route: 048
  7. DYAZIDE [Concomitant]
     Active Substance: HYDROCHLOROTHIAZIDE\TRIAMTERENE
     Indication: POLYURIA
     Dosage: 37.5/27MG, 1 /DAY, SINCE 10-12 YEARS
     Route: 065
  8. PRADAXA [Concomitant]
     Active Substance: DABIGATRAN ETEXILATE MESYLATE
     Indication: THROMBOSIS
     Dosage: 150 MG, 2 /DAY
     Route: 065
     Dates: start: 2017, end: 2017
  9. FLOMAX [Concomitant]
     Active Substance: TAMSULOSIN HYDROCHLORIDE
     Indication: PROSTATE CANCER
     Dosage: 0.4 MG, 1 /DAY, SINCE 3 YEARS
     Route: 065
     Dates: start: 2017
  10. PRILOSEC [Concomitant]
     Active Substance: OMEPRAZOLE MAGNESIUM
     Indication: GASTROOESOPHAGEAL REFLUX DISEASE
     Dosage: 20 MG, 2 /DAY, SINCE 3-4 MONTHS
     Route: 065
     Dates: start: 2017
  11. PANTOPRAZOLE [Concomitant]
     Active Substance: PANTOPRAZOLE
     Indication: BLOOD PRESSURE ABNORMAL
     Dosage: 40 MG, 1 /DAY
     Route: 065
     Dates: start: 201708
  12. AVODART [Concomitant]
     Active Substance: DUTASTERIDE
     Indication: PROSTATE CANCER
     Dosage: 0.5 MG, 1 /DAY, SINCE 3 YEARS
     Route: 065
     Dates: start: 2017
  13. MELOXICAM. [Concomitant]
     Active Substance: MELOXICAM
     Indication: ARTHRITIS
     Dosage: 15 MG, 1 /DAY, SINCE 25 MG
     Route: 065
  14. RYTARY [Suspect]
     Active Substance: CARBIDOPA\LEVODOPA
     Dosage: 61.25/245 MG ONE CAPSULE THREE TIMES DAILY PLUS 23.75/95 MG, ONE CAPSULE ALONG WITH MORNING DOSE
     Route: 048
     Dates: start: 2017
  15. RYTARY [Suspect]
     Active Substance: CARBIDOPA\LEVODOPA
     Indication: PARKINSON^S DISEASE
     Dosage: 36.25/145 MG, UNK
     Route: 048
  16. RYTARY [Suspect]
     Active Substance: CARBIDOPA\LEVODOPA
     Dosage: 48.75/195 MG, UNK
     Route: 048
  17. XARELTO [Concomitant]
     Active Substance: RIVAROXABAN
     Indication: THROMBOSIS
     Dosage: UNK
     Route: 065

REACTIONS (2)
  - Tremor [Recovering/Resolving]
  - Coronary arterial stent insertion [Unknown]

NARRATIVE: CASE EVENT DATE: 2015
